FAERS Safety Report 16942978 (Version 1)
Quarter: 2019Q4

REPORT INFORMATION
  Report Type: Spontaneous
  Country: US (occurrence: TN)
  Receive Date: 20191021
  Receipt Date: 20191021
  Transmission Date: 20200122
  Serious: Yes (Other)
  Sender: FDA-Public Use
  Company Number: TN-ALLERGAN-1942357US

PATIENT
  Sex: Male

DRUGS (4)
  1. TRIPTORELIN PAMOATE UNK [Suspect]
     Active Substance: TRIPTORELIN PAMOATE
     Indication: PROSTATE CANCER RECURRENT
     Dosage: UNK
     Route: 065
  2. CYPROTERONE [Suspect]
     Active Substance: CYPROTERONE
     Indication: PROSTATE CANCER
     Dosage: UNK
     Route: 065
  3. CYPROTERONE [Suspect]
     Active Substance: CYPROTERONE
     Indication: BLADDER ADENOCARCINOMA STAGE UNSPECIFIED
  4. TRIPTORELIN PAMOATE UNK [Suspect]
     Active Substance: TRIPTORELIN PAMOATE
     Indication: BLADDER ADENOCARCINOMA STAGE UNSPECIFIED

REACTIONS (2)
  - Squamous cell carcinoma [Unknown]
  - Haematuria [Unknown]
